FAERS Safety Report 6413408 (Version 11)
Quarter: 2013Q3

REPORT INFORMATION
  Report Type: Spontaneous
  Country: US (occurrence: US)
  Receive Date: 20070914
  Receipt Date: 20130815
  Transmission Date: 20140515
  Serious: Yes (Hospitalization, Other)
  Sender: FDA-Public Use
  Company Number: PHEH2007US12133

PATIENT
  Age: 54 Year
  Sex: Female

DRUGS (14)
  1. ZOMETA [Suspect]
     Dosage: 4 MG, MONTHLY
     Dates: end: 2005
  2. AREDIA [Suspect]
     Dosage: 30 MG
  3. PREDNISONE [Concomitant]
  4. AROMASIN [Concomitant]
  5. RADIATION THERAPY [Concomitant]
  6. CHEMOTHERAPEUTICS NOS [Concomitant]
  7. LODINE [Concomitant]
  8. METHOTREXATE [Concomitant]
  9. MOBIC [Concomitant]
  10. ZIAC [Concomitant]
  11. TORADOL [Concomitant]
  12. LOVASTATIN [Concomitant]
  13. PRILOSEC [Concomitant]
  14. VICODIN [Concomitant]

REACTIONS (95)
  - Osteoarthritis [Recovering/Resolving]
  - Arthralgia [Not Recovered/Not Resolved]
  - Haemoptysis [Unknown]
  - Vertigo [Unknown]
  - Benign bone neoplasm [Unknown]
  - Osteosclerosis [Unknown]
  - Osteonecrosis of jaw [Unknown]
  - Pain [Unknown]
  - Infection [Unknown]
  - Deformity [Unknown]
  - Decreased appetite [Unknown]
  - Weight decreased [Unknown]
  - Oral pain [Unknown]
  - Gingival disorder [Unknown]
  - Pain in jaw [Unknown]
  - Swelling face [Unknown]
  - Neoplasm progression [Unknown]
  - Metastases to spine [Unknown]
  - Metastases to liver [Unknown]
  - Metastases to bone [Unknown]
  - Back pain [Not Recovered/Not Resolved]
  - Fractured sacrum [Unknown]
  - Nausea [Unknown]
  - Diarrhoea [Unknown]
  - Vomiting [Unknown]
  - Musculoskeletal pain [Unknown]
  - Muscle spasms [Unknown]
  - Cellulitis [Unknown]
  - Tendonitis [Recovering/Resolving]
  - Hypoacusis [Unknown]
  - Lumbar spinal stenosis [Unknown]
  - Neuropathy peripheral [Unknown]
  - Aneurysm [Unknown]
  - Hiatus hernia [Unknown]
  - Gastrooesophageal reflux disease [Unknown]
  - Pulmonary mass [Unknown]
  - Cataract [Unknown]
  - Pelvic pain [Unknown]
  - Vulvovaginal pain [Recovered/Resolved]
  - Spinal osteoarthritis [Unknown]
  - Intervertebral disc annular tear [Unknown]
  - Blood glucose increased [Unknown]
  - Gastritis [Unknown]
  - Glycosylated haemoglobin increased [Unknown]
  - Blood triglycerides increased [Unknown]
  - Blood cholesterol increased [Unknown]
  - High density lipoprotein decreased [Unknown]
  - Low density lipoprotein increased [Unknown]
  - Antinuclear antibody positive [Unknown]
  - Chills [Unknown]
  - Joint swelling [Unknown]
  - Musculoskeletal discomfort [Not Recovered/Not Resolved]
  - Musculoskeletal stiffness [Not Recovered/Not Resolved]
  - Joint stiffness [Unknown]
  - Asthenia [Unknown]
  - Physical disability [Unknown]
  - Chest discomfort [Unknown]
  - Abdominal pain [Recovered/Resolved]
  - Neck pain [Unknown]
  - Dizziness [Recovered/Resolved]
  - Insomnia [Unknown]
  - Anaemia [Unknown]
  - Fatigue [Unknown]
  - Dyspnoea exertional [Unknown]
  - Rash [Unknown]
  - Pain in extremity [Unknown]
  - Myalgia [Not Recovered/Not Resolved]
  - Pruritus [Unknown]
  - Haematemesis [Unknown]
  - Abdominal pain upper [Unknown]
  - Eructation [Unknown]
  - Regurgitation [Unknown]
  - Large intestine fibroma [Unknown]
  - Colitis [Unknown]
  - Hypertension [Unknown]
  - Pleural effusion [Unknown]
  - Upper respiratory tract infection [Unknown]
  - Cough [Unknown]
  - Metastases to abdominal cavity [Unknown]
  - Malignant neoplasm progression [Unknown]
  - Exposed bone in jaw [Unknown]
  - Gait disturbance [Unknown]
  - Periodontal disease [Unknown]
  - Dental caries [Unknown]
  - Paraesthesia oral [Unknown]
  - Anxiety [Unknown]
  - Metastases to chest wall [Unknown]
  - Metastases to lung [Unknown]
  - Hilar lymphadenopathy [Unknown]
  - Malignant pleural effusion [Unknown]
  - Thyroid neoplasm [Unknown]
  - Impaired gastric emptying [Unknown]
  - Atelectasis [Unknown]
  - Renal disorder [Unknown]
  - Urinary incontinence [Unknown]
